FAERS Safety Report 10842518 (Version 1)
Quarter: 2015Q1

REPORT INFORMATION
  Report Type: Spontaneous
  Country: US (occurrence: US)
  Receive Date: 20150220
  Receipt Date: 20150220
  Transmission Date: 20150721
  Serious: No
  Sender: FDA-Public Use
  Company Number: US-ABBVIE-14P-163-1279153-00

PATIENT
  Age: 30 Year
  Sex: Female

DRUGS (4)
  1. METHOTREXATE [Suspect]
     Active Substance: METHOTREXATE
     Indication: PSORIASIS
  2. ANOTHER BIOLOGIC [Suspect]
     Active Substance: UNSPECIFIED INGREDIENT
     Indication: PSORIASIS
  3. HUMIRA [Suspect]
     Active Substance: ADALIMUMAB
     Indication: PSORIATIC ARTHROPATHY
  4. HUMIRA [Suspect]
     Active Substance: ADALIMUMAB
     Indication: PSORIASIS

REACTIONS (8)
  - Pain [Unknown]
  - Guttate psoriasis [Unknown]
  - Feeling abnormal [Unknown]
  - Arthralgia [Unknown]
  - Irritability [Unknown]
  - Skin plaque [Unknown]
  - Skin fissures [Unknown]
  - Drug ineffective [Unknown]
